FAERS Safety Report 18765023 (Version 2)
Quarter: 2021Q2

REPORT INFORMATION
  Report Type: Spontaneous
  Country: US (occurrence: US)
  Receive Date: 20210120
  Receipt Date: 20210520
  Transmission Date: 20210717
  Serious: No
  Sender: FDA-Public Use
  Company Number: US-PFIZER INC-2021025466

PATIENT
  Age: 50 Year
  Sex: Female
  Weight: 94.8 kg

DRUGS (3)
  1. CHANTIX [Suspect]
     Active Substance: VARENICLINE TARTRATE
     Dosage: UNK
     Dates: start: 20210104, end: 20210118
  2. DUPIXENT [Suspect]
     Active Substance: DUPILUMAB
     Indication: FIBROMYALGIA
     Dosage: UNK (INJECTION EVERY OTHER WEEK)
  3. CHANTIX [Suspect]
     Active Substance: VARENICLINE TARTRATE
     Dosage: UNK
     Dates: start: 20210101

REACTIONS (3)
  - Dysstasia [Unknown]
  - Back pain [Recovering/Resolving]
  - Insomnia [Unknown]

NARRATIVE: CASE EVENT DATE: 202101
